FAERS Safety Report 6417787-9 (Version None)
Quarter: 2009Q4

REPORT INFORMATION
  Report Type: 
  Country: None (occurrence: None)
  Receive Date: 20091028
  Receipt Date: 20091021
  Transmission Date: 20100525
  Serious: Yes (Other)
  Sender: FDA-Public Use
  Company Number: GB-ASTRAZENECA-2009SE21509

PATIENT
  Age: 86 Year
  Sex: Female

DRUGS (4)
  1. QUETIAPINE [Suspect]
     Indication: BIPOLAR DISORDER
     Route: 048
     Dates: end: 20090701
  2. VALPROIC ACID [Suspect]
     Indication: BIPOLAR DISORDER
     Route: 048
  3. VALPROIC ACID [Suspect]
     Route: 048
  4. ANTIBIOTICS [Concomitant]
     Route: 065

REACTIONS (1)
  - NEUTROPENIA [None]
